FAERS Safety Report 19237543 (Version 1)
Quarter: 2021Q2

REPORT INFORMATION
  Report Type: Spontaneous
  Country: US (occurrence: US)
  Receive Date: 20210510
  Receipt Date: 20210510
  Transmission Date: 20210717
  Serious: Yes (Death, Other)
  Sender: FDA-Public Use
  Company Number: US-PFIZER INC-8-94215-021W

PATIENT
  Age: 35 Year
  Sex: Male

DRUGS (3)
  1. MORPHINE SULFATE. [Interacting]
     Active Substance: MORPHINE SULFATE
     Dosage: UNK UNK, DAILY
     Route: 065
  2. FENTANYL CITRATE. [Suspect]
     Active Substance: FENTANYL CITRATE
     Dosage: UNK UNK, DAILY
     Route: 065
  3. COCAINE [Interacting]
     Active Substance: COCAINE
     Dosage: UNK UNK, DAILY
     Route: 065

REACTIONS (2)
  - Overdose [Fatal]
  - Drug interaction [Fatal]

NARRATIVE: CASE EVENT DATE: 1992
